FAERS Safety Report 5384870-9 (Version None)
Quarter: 2007Q3

REPORT INFORMATION
  Report Type: 
  Country: None (occurrence: None)
  Receive Date: 20070709
  Receipt Date: 20070703
  Transmission Date: 20080115
  Serious: Yes (Death)
  Sender: FDA-Public Use
  Company Number: 20073904

PATIENT
  Sex: Female

DRUGS (4)
  1. LIORESAL [Suspect]
     Indication: MUSCLE SPASTICITY
     Dosage: 105 MCG DAILY INTRATHECAL
     Route: 037
  2. HYDROMORPHONE HCL [Concomitant]
  3. DROPERIDOL [Concomitant]
  4. ZICONOTIDE [Concomitant]

REACTIONS (1)
  - DEATH [None]
